FAERS Safety Report 10937172 (Version 2)
Quarter: 2015Q2

REPORT INFORMATION
  Report Type: Spontaneous
  Country: US (occurrence: US)
  Receive Date: 20150321
  Receipt Date: 20150525
  Transmission Date: 20150821
  Serious: No
  Sender: FDA-Public Use
  Company Number: US-JNJFOC-20130806207

PATIENT
  Age: 46 Year
  Sex: Female
  Weight: 81.65 kg

DRUGS (8)
  1. TOPIRAMATE. [Suspect]
     Active Substance: TOPIRAMATE
     Indication: ATTENTION DEFICIT/HYPERACTIVITY DISORDER
     Route: 048
     Dates: start: 2013, end: 2013
  2. TRAZODONE [Concomitant]
     Active Substance: TRAZODONE HYDROCHLORIDE
     Indication: SLEEP DISORDER
     Route: 065
     Dates: start: 2013
  3. TOPAMAX [Suspect]
     Active Substance: TOPIRAMATE
     Indication: ATTENTION DEFICIT/HYPERACTIVITY DISORDER
     Dosage: STARTED ABOUT 12 YEARS AGO
     Route: 048
  4. TOPIRAMATE. [Suspect]
     Active Substance: TOPIRAMATE
     Indication: ATTENTION DEFICIT/HYPERACTIVITY DISORDER
     Route: 048
     Dates: start: 2013, end: 2013
  5. XANAX [Concomitant]
     Active Substance: ALPRAZOLAM
     Indication: ANXIETY
     Route: 048
     Dates: start: 2013
  6. TOPAMAX [Suspect]
     Active Substance: TOPIRAMATE
     Indication: ATTENTION DEFICIT/HYPERACTIVITY DISORDER
     Route: 048
     Dates: end: 2007
  7. TOPIRAMATE. [Suspect]
     Active Substance: TOPIRAMATE
     Indication: ATTENTION DEFICIT/HYPERACTIVITY DISORDER
     Route: 048
     Dates: start: 2013
  8. TOPAMAX [Suspect]
     Active Substance: TOPIRAMATE
     Indication: ATTENTION DEFICIT/HYPERACTIVITY DISORDER
     Route: 048
     Dates: start: 2008, end: 2008

REACTIONS (7)
  - Migraine [Recovered/Resolved]
  - Product use issue [Unknown]
  - Thinking abnormal [Recovered/Resolved]
  - Drug dose omission [Unknown]
  - Therapy cessation [Not Recovered/Not Resolved]
  - Feeling abnormal [Not Recovered/Not Resolved]
  - Impaired self-care [Recovered/Resolved]

NARRATIVE: CASE EVENT DATE: 20130810
